FAERS Safety Report 12636659 (Version 1)
Quarter: 2016Q3

REPORT INFORMATION
  Report Type: Spontaneous
  Country: US (occurrence: US)
  Receive Date: 20160809
  Receipt Date: 20160809
  Transmission Date: 20161109
  Serious: No
  Sender: FDA-Public Use
  Company Number: US-ACTAVIS-2016-06630

PATIENT
  Age: 49 Year
  Sex: Female

DRUGS (1)
  1. MICONAZOLE NITRATE-MICONAZOLE (AMALLC) [Suspect]
     Active Substance: MICONAZOLE NITRATE
     Indication: PRODUCT USED FOR UNKNOWN INDICATION
     Dosage: UNK UNK, WITHIN A 7 DAY PERIOD
     Route: 065
     Dates: start: 20160201, end: 20160307

REACTIONS (2)
  - Inappropriate schedule of drug administration [Unknown]
  - Drug ineffective [Unknown]

NARRATIVE: CASE EVENT DATE: 20160324
